FAERS Safety Report 6697206-8 (Version None)
Quarter: 2010Q2

REPORT INFORMATION
  Report Type: 
  Country: None (occurrence: None)
  Receive Date: 20100426
  Receipt Date: 20100415
  Transmission Date: 20101027
  Serious: Yes (Hospitalization)
  Sender: FDA-Public Use
  Company Number: FR-PFIZER INC-2010047987

PATIENT
  Age: 72 Year
  Sex: Female

DRUGS (1)
  1. FARMORUBICINE [Suspect]
     Dosage: UNK
     Route: 042
     Dates: start: 20100331

REACTIONS (4)
  - COUGH [None]
  - DYSPNOEA [None]
  - EXTRAVASATION [None]
  - PLEURAL EFFUSION [None]
